APPROVED DRUG PRODUCT: SYNRIBO
Active Ingredient: OMACETAXINE MEPESUCCINATE
Strength: 3.5MG/VIAL
Dosage Form/Route: POWDER;SUBCUTANEOUS
Application: N203585 | Product #001
Applicant: TEVA PHARMACEUTICALS INTERNATIONAL GMBH
Approved: Oct 26, 2012 | RLD: Yes | RS: No | Type: DISCN

PATENTS:
Patent 6987103 | Expires: Oct 26, 2026